FAERS Safety Report 5728025-4 (Version None)
Quarter: 2008Q2

REPORT INFORMATION
  Report Type: 
  Country: None (occurrence: None)
  Receive Date: 20080430
  Receipt Date: 20080415
  Transmission Date: 20081010
  Serious: Yes (Other)
  Sender: FDA-Public Use
  Company Number: 2008US001112

PATIENT
  Sex: Female

DRUGS (3)
  1. ADENOSCAN [Suspect]
     Indication: SCAN MYOCARDIAL PERFUSION
     Dosage: 24 MG, TOTAL DOSE, IV NOS
     Route: 042
     Dates: start: 20080331, end: 20080331
  2. MYOVIEW (ZINC CHLORIDE, TETROFOSMIN) [Concomitant]
  3. AMINOPHYLLIN [Concomitant]

REACTIONS (7)
  - BRADYCARDIA [None]
  - CONVULSION [None]
  - DISORIENTATION [None]
  - DYSPNOEA [None]
  - INFUSION RELATED REACTION [None]
  - UNRESPONSIVE TO STIMULI [None]
  - VENTRICULAR FIBRILLATION [None]
